FAERS Safety Report 21688868 (Version 1)
Quarter: 2022Q4

REPORT INFORMATION
  Report Type: Spontaneous
  Country: US (occurrence: None)
  Receive Date: 20221206
  Receipt Date: 20221206
  Transmission Date: 20230113
  Serious: No
  Sender: FDA-Public Use
  Company Number: 2022A375118

PATIENT
  Age: 59 Year
  Sex: Male

DRUGS (2)
  1. SYMBICORT [Suspect]
     Active Substance: BUDESONIDE\FORMOTEROL FUMARATE DIHYDRATE
     Dosage: DOSE AND FREQUENCY UNKNOWN UNKNOWN
     Route: 055
  2. DUPIXENT [Suspect]
     Active Substance: DUPILUMAB
     Indication: Nasal polyps
     Dosage: EVERY OTHER WEEK
     Route: 058
     Dates: start: 20220324

REACTIONS (7)
  - Lip pain [Unknown]
  - Lip erythema [Unknown]
  - Lip dry [Unknown]
  - Fatigue [Recovered/Resolved]
  - Oral herpes [Recovered/Resolved]
  - Adverse event [Unknown]
  - Lip swelling [Unknown]

NARRATIVE: CASE EVENT DATE: 20220101
